FAERS Safety Report 4787816-7 (Version None)
Quarter: 2005Q4

REPORT INFORMATION
  Report Type: 
  Country: None (occurrence: None)
  Receive Date: 20051004
  Receipt Date: 20050929
  Transmission Date: 20060501
  Serious: Yes (Life-Threatening, Hospitalization)
  Sender: FDA-Public Use
  Company Number: GB-MERCK-0510GBR00007

PATIENT
  Age: 92 Year

DRUGS (11)
  1. FOSAMAX [Suspect]
     Indication: OSTEOPOROSIS PROPHYLAXIS
     Route: 048
     Dates: end: 20050914
  2. PREDNISOLONE [Suspect]
     Indication: POLYMYALGIA RHEUMATICA
     Route: 048
     Dates: end: 20050914
  3. ASPIRIN [Suspect]
     Indication: PROPHYLAXIS
     Route: 048
     Dates: end: 20050914
  4. ATORVASTATIN CALCIUM [Concomitant]
     Route: 048
  5. NITROGLYCERIN [Concomitant]
     Route: 060
  6. DILTIAZEM MALATE [Concomitant]
     Route: 065
  7. RANITIDINE [Concomitant]
     Route: 048
  8. CALCIUM CARBONATE AND CHOLECALCIFEROL [Concomitant]
     Route: 065
  9. FERROUS SULFATE [Concomitant]
     Route: 048
  10. LISINOPRIL [Concomitant]
     Route: 048
  11. FUSIDATE SODIUM [Concomitant]
     Route: 048
     Dates: start: 20050907

REACTIONS (4)
  - GASTROINTESTINAL HAEMORRHAGE [None]
  - HAEMATEMESIS [None]
  - OESOPHAGEAL ULCER [None]
  - ORAL INTAKE REDUCED [None]
